FAERS Safety Report 7267366-9 (Version None)
Quarter: 2011Q1

REPORT INFORMATION
  Report Type: 
  Country: None (occurrence: None)
  Receive Date: 20110201
  Receipt Date: 20101012
  Transmission Date: 20110831
  Serious: No
  Sender: FDA-Public Use
  Company Number: A0868667A

PATIENT
  Age: 66 Year
  Sex: Male
  Weight: 89.1 kg

DRUGS (11)
  1. BLOOD PRESSURE MEDICATION [Concomitant]
  2. FENOFIBRATE [Concomitant]
  3. AMBIEN [Concomitant]
  4. ARIXTRA [Suspect]
     Indication: PULMONARY EMBOLISM
     Dosage: 7.5MG PER DAY
     Route: 058
     Dates: start: 20100501
  5. KEPPRA [Concomitant]
  6. DIABETES MEDICATION [Concomitant]
  7. GLIPIZIDE [Concomitant]
  8. ACID REFLUX MED. [Concomitant]
  9. OMEPRAZOLE [Concomitant]
  10. METOPROLOL [Concomitant]
  11. CHOLESTEROL REDUCING AGENT [Concomitant]

REACTIONS (2)
  - DIZZINESS [None]
  - INSOMNIA [None]
